FAERS Safety Report 5235601-4 (Version None)
Quarter: 2007Q1

REPORT INFORMATION
  Report Type: 
  Country: None (occurrence: None)
  Receive Date: 20061208
  Receipt Date: 20060503
  Transmission Date: 20070707
  Serious: Yes (Other)
  Sender: FDA-Public Use
  Company Number: 2006UW08606

PATIENT
  Age: 66 Year
  Sex: Female
  Weight: 83.914 kg

DRUGS (3)
  1. CRESTOR [Suspect]
     Indication: BLOOD CHOLESTEROL INCREASED
     Dosage: 5 MG HS PO
     Route: 048
  2. LUNESTA [Concomitant]
  3. LOPRESSOR [Concomitant]

REACTIONS (1)
  - DYSGEUSIA [None]
